FAERS Safety Report 8841801 (Version 1)
Quarter: 2012Q4

REPORT INFORMATION
  Report Type: Report from Study
  Country: CA (occurrence: CA)
  Receive Date: 20121016
  Receipt Date: 20121016
  Transmission Date: 20130627
  Serious: Yes (Other)
  Sender: FDA-Public Use
  Company Number: CA-JNJFOC-20121005307

PATIENT
  Sex: Female
  Weight: 111.7 kg

DRUGS (8)
  1. REMICADE [Suspect]
     Indication: CROHN^S DISEASE
     Route: 042
     Dates: start: 20080311
  2. TECTA [Concomitant]
     Route: 065
  3. GABAPENTIN [Concomitant]
     Route: 065
  4. CHOLESTYRAMINE [Concomitant]
     Route: 065
  5. TYLENOL 3 [Concomitant]
     Route: 065
  6. HYDROMORPHONE [Concomitant]
     Route: 065
  7. NABILONE [Concomitant]
     Route: 065
  8. NORTRIPTYLINE [Concomitant]
     Route: 065

REACTIONS (3)
  - Mouth cyst [Recovering/Resolving]
  - Chest pain [Not Recovered/Not Resolved]
  - Back pain [Not Recovered/Not Resolved]
